FAERS Safety Report 8106901-5 (Version None)
Quarter: 2012Q1

REPORT INFORMATION
  Report Type: 
  Country: None (occurrence: None)
  Receive Date: 20120202
  Receipt Date: 20120124
  Transmission Date: 20120608
  Serious: No
  Sender: FDA-Public Use
  Company Number: US-BAYER-2012-007928

PATIENT
  Age: 84 Year
  Sex: Female

DRUGS (2)
  1. CIPROFLOXACIN [Suspect]
     Indication: URINARY TRACT INFECTION
     Route: 048
  2. DRONEDARONE HCL [Interacting]
     Indication: ATRIAL FIBRILLATION

REACTIONS (1)
  - NO ADVERSE EVENT [None]
